FAERS Safety Report 8405733-8 (Version None)
Quarter: 2012Q2

REPORT INFORMATION
  Report Type: 
  Country: None (occurrence: None)
  Receive Date: 20120530
  Receipt Date: 20120530
  Transmission Date: 20120825
  Serious: No
  Sender: FDA-Public Use
  Company Number: None

PATIENT
  Age: 46 Year
  Sex: Female

DRUGS (1)
  1. PROCRIT [Suspect]
     Indication: DEFICIENCY ANAEMIA
     Dosage: 4,000 BIW SQ
     Route: 058
     Dates: start: 20111204

REACTIONS (1)
  - INJECTION SITE PAIN [None]
